FAERS Safety Report 23516076 (Version 1)
Quarter: 2024Q1

REPORT INFORMATION
  Report Type: 
  Country: None (occurrence: None)
  Receive Date: 20240213
  Receipt Date: 20240213
  Transmission Date: 20240410
  Serious: No
  Sender: FDA-Public Use
  Company Number: US-ROCHE-3506511

PATIENT
  Weight: 47.67 kg

DRUGS (1)
  1. EVRYSDI [Suspect]
     Active Substance: RISDIPLAM
     Dosage: 11 REFILLS?STRENGTH- 0.75MG/ML, 80ML(IN 100ML BOTTLE)?QUANTITY- 1 MONTH SUPPLY
     Dates: start: 20200820, end: 20231213

REACTIONS (1)
  - Pancreatitis [None]

NARRATIVE: CASE EVENT DATE: 20231210
